FAERS Safety Report 20501840 (Version 2)
Quarter: 2022Q3

REPORT INFORMATION
  Report Type: Report from Study
  Country: SV (occurrence: SV)
  Receive Date: 20220222
  Receipt Date: 20220819
  Transmission Date: 20221027
  Serious: Yes (Other)
  Sender: FDA-Public Use
  Company Number: SV-BAYER-2022A025007

PATIENT
  Age: 34 Year
  Sex: Female

DRUGS (2)
  1. BETAFERON [Suspect]
     Active Substance: INTERFERON BETA-1B
     Indication: Multiple sclerosis
     Dosage: 1 ML, QOD
     Dates: start: 20200507, end: 20211115
  2. BETAFERON [Suspect]
     Active Substance: INTERFERON BETA-1B
     Indication: Multiple sclerosis
     Dosage: UNK, QOD
     Dates: start: 20220701

REACTIONS (6)
  - Abortion threatened [Not Recovered/Not Resolved]
  - Vaginal haemorrhage [None]
  - Maternal exposure during pregnancy [Not Recovered/Not Resolved]
  - Pregnancy [None]
  - Risk of future pregnancy miscarriage [None]
  - Live birth [None]

NARRATIVE: CASE EVENT DATE: 20211001
